FAERS Safety Report 24237242 (Version 4)
Quarter: 2024Q3

REPORT INFORMATION
  Report Type: Spontaneous
  Country: US (occurrence: US)
  Receive Date: 20240822
  Receipt Date: 20240913
  Transmission Date: 20241017
  Serious: Yes (Hospitalization, Other)
  Sender: BAXTER
  Company Number: US-BAXTER-2024BAX023104

PATIENT
  Age: 22 Year
  Sex: Male
  Weight: 97.06 kg

DRUGS (7)
  1. CYCLOPHOSPHAMIDE [Suspect]
     Active Substance: CYCLOPHOSPHAMIDE
     Indication: Lupus nephritis
     Dosage: 2140 MILLILITER, SINGLE, INFUSION
     Route: 042
     Dates: start: 20240723, end: 20240723
  2. PREDNISONE [Suspect]
     Active Substance: PREDNISONE
     Dosage: UNK
     Route: 065
     Dates: start: 20240724
  3. PREDNISONE [Suspect]
     Active Substance: PREDNISONE
     Dosage: 60 MG, DAILY
     Route: 048
     Dates: start: 20240812, end: 20240818
  4. PREDNISONE [Suspect]
     Active Substance: PREDNISONE
     Dosage: 60 MG, DAILY, DAY 21
     Route: 048
     Dates: start: 20240815
  5. PREDNISONE [Suspect]
     Active Substance: PREDNISONE
     Dosage: 50MG, QD, DAY 25
     Route: 048
     Dates: start: 20240819
  6. LISINOPRIL [Suspect]
     Active Substance: LISINOPRIL
     Indication: Blood pressure increased
     Dosage: UNK
     Route: 065
     Dates: start: 20240724, end: 20240807
  7. LISINOPRIL [Suspect]
     Active Substance: LISINOPRIL
     Indication: Proteinuria

REACTIONS (9)
  - Lupus nephritis [Unknown]
  - Oedema peripheral [Unknown]
  - Condition aggravated [Unknown]
  - Acute kidney injury [Recovered/Resolved]
  - Blood creatinine increased [Recovered/Resolved]
  - Hyperuricaemia [Unknown]
  - Acute kidney injury [Unknown]
  - Anaemia [Unknown]
  - Gouty arthritis [Unknown]

NARRATIVE: CASE EVENT DATE: 20240807
